FAERS Safety Report 4537629-6 (Version None)
Quarter: 2004Q4

REPORT INFORMATION
  Report Type: 
  Country: None (occurrence: None)
  Receive Date: 20041221
  Receipt Date: 20040916
  Transmission Date: 20050328
  Serious: No
  Sender: FDA-Public Use
  Company Number: A-US2004-07434

PATIENT
  Age: 11 Month
  Sex: Male

DRUGS (2)
  1. ZAVESCA [Suspect]
     Indication: GAUCHER'S DISEASE
     Dosage: 100 MG, BID, ORAL
     Route: 048
     Dates: start: 20040801, end: 20040909
  2. ZAVESCA [Suspect]
     Dosage: 100 MG, BID, ORAL
     Route: 048
     Dates: start: 20040501, end: 20040601

REACTIONS (1)
  - DIARRHOEA [None]
